FAERS Safety Report 8925870 (Version 1)
Quarter: 2012Q4

REPORT INFORMATION
  Report Type: 
  Country: CA (occurrence: CA)
  Receive Date: 20121126
  Receipt Date: 20121126
  Transmission Date: 20130627
  Serious: Yes (Death, Hospitalization)
  Sender: FDA-Public Use
  Company Number: CA-B.I. PHARMACEUTICALS,INC./RIDGEFIELD-2012-CN-02294CN

PATIENT
  Age: 94 Year
  Sex: Female

DRUGS (1)
  1. PRADAX [Suspect]
     Dosage: 220 mg
     Dates: start: 2012

REACTIONS (2)
  - Myocardial infarction [Fatal]
  - Fall [Unknown]
